FAERS Safety Report 7961451-1 (Version None)
Quarter: 2011Q4

REPORT INFORMATION
  Report Type: 
  Country: None (occurrence: None)
  Receive Date: 20111202
  Receipt Date: 20111202
  Transmission Date: 20120403
  Serious: Yes (Hospitalization)
  Sender: FDA-Public Use
  Company Number: None

PATIENT
  Age: 62 Year
  Sex: Male
  Weight: 65.2 kg

DRUGS (1)
  1. CLOPIDOGREL [Suspect]
     Indication: ISCHAEMIC STROKE
     Dosage: 75 MG EVERY DAY PO
     Route: 048
     Dates: start: 20111112, end: 20111124

REACTIONS (2)
  - NAUSEA [None]
  - HAEMATEMESIS [None]
